FAERS Safety Report 9975861 (Version 2)
Quarter: 2014Q2

REPORT INFORMATION
  Report Type: Report from Study
  Country: KR (occurrence: KR)
  Receive Date: 20140306
  Receipt Date: 20140411
  Transmission Date: 20141212
  Serious: Yes (Hospitalization)
  Sender: FDA-Public Use
  Company Number: KR-B.I. PHARMACEUTICALS,INC./RIDGEFIELD-2014-BI-08938BI

PATIENT
  Age: 43 Year
  Sex: Female
  Weight: 53 kg

DRUGS (10)
  1. AFATINIB [Suspect]
     Indication: NON-SMALL CELL LUNG CANCER
     Dosage: 40 MG
     Route: 048
     Dates: start: 20140212, end: 20140221
  2. METOCLOPRAMIDE [Suspect]
     Indication: NAUSEA
     Dosage: 10 MG
     Route: 042
     Dates: start: 20140222
  3. SALCATONIN [Suspect]
     Indication: HYPERCALCAEMIA
     Dosage: 50 U
     Route: 042
     Dates: start: 20140222
  4. FUROSEMIDE [Suspect]
     Indication: HYPERCALCAEMIA
     Dosage: 20 MG
     Route: 042
     Dates: start: 20140222
  5. MORPHINE HCL [Suspect]
     Indication: PAIN
     Dosage: 10 MG
     Route: 042
     Dates: start: 20140222
  6. BENZYDAMINE [Suspect]
     Indication: MUCOSAL INFLAMMATION
     Dosage: 100 ML
     Route: 050
     Dates: start: 20140222
  7. MGSO4 [Suspect]
     Indication: BLOOD MAGNESIUM DECREASED
     Dosage: DAILY DOSE: 2G/20 ML
     Route: 042
     Dates: start: 20140223
  8. POT.PHOSPHATE [Suspect]
     Indication: HYPOKALAEMIA
     Dosage: 20 ML
     Route: 042
     Dates: start: 20140223
  9. CA.GLUCONATE [Suspect]
     Indication: HYPOCALCAEMIA
     Dosage: DAILY DOSE: 2G/20 ML
     Route: 042
     Dates: start: 20140223
  10. TAZOFERIN [Suspect]
     Indication: INFECTION
     Dosage: 4.5 G
     Route: 042
     Dates: start: 20140225

REACTIONS (1)
  - Hypercalcaemia [Recovered/Resolved]
